FAERS Safety Report 12634774 (Version 1)
Quarter: 2016Q3

REPORT INFORMATION
  Report Type: Spontaneous
  Country: BR (occurrence: BR)
  Receive Date: 20160809
  Receipt Date: 20160809
  Transmission Date: 20161109
  Serious: Yes (Hospitalization, Other)
  Sender: FDA-Public Use
  Company Number: BR-ALEXION PHARMACEUTICALS INC-A201605593

PATIENT
  Sex: Male

DRUGS (2)
  1. KANUMA [Suspect]
     Active Substance: SEBELIPASE ALFA
     Dosage: 5 MG/KG, QW
     Route: 042
  2. KANUMA [Suspect]
     Active Substance: SEBELIPASE ALFA
     Indication: LYSOSOMAL ACID LIPASE DEFICIENCY
     Dosage: 3 MG/KG, QW
     Route: 042
     Dates: start: 201603

REACTIONS (6)
  - Adrenal insufficiency [Unknown]
  - Transaminases increased [Recovering/Resolving]
  - Blood triglycerides increased [Unknown]
  - Pneumoperitoneum [Unknown]
  - Hypoglycaemia [Unknown]
  - Pneumonia [Unknown]
